FAERS Safety Report 5849399-X (Version None)
Quarter: 2008Q3

REPORT INFORMATION
  Report Type: 
  Country: None (occurrence: None)
  Receive Date: 20080815
  Receipt Date: 20080806
  Transmission Date: 20090109
  Serious: Yes (Death, Hospitalization)
  Sender: FDA-Public Use
  Company Number: GXKR2008CA07385

PATIENT

DRUGS (15)
  1. ANAGRELIDE (NGX) (ANAGRELIDE) UNKNOWN [Suspect]
     Indication: THROMBOCYTHAEMIA
     Dosage: 0.5 MG, TID;
     Dates: start: 20050101
  2. PREDNISONE [Suspect]
     Dosage: 50 MG, QD; ORAL; 10 MG, QD; ORAL, 50 MG, QD; ORAL
     Route: 048
  3. HYDROXYUREA [Concomitant]
  4. DALTEPARIN SODIUM [Concomitant]
  5. CLOPIDOGREL [Concomitant]
  6. ACETYLSALICYLIC ACID SRT [Concomitant]
  7. RAMIPRIL [Concomitant]
  8. METOPROLOL TARTRATE [Concomitant]
  9. SIMVASTATIN [Concomitant]
  10. NITROGLYCERIN :A.L.^ (GLYCERYL TRINITRATE) [Concomitant]
  11. FUROSEMIDE (FUROSEMIDE) [Concomitant]
  12. CIPROFLOXACIN [Concomitant]
  13. NYSTATIN [Concomitant]
  14. ZOPICLONE (ZOPICLONE) [Concomitant]
  15. ACETAMINOPHEN [Concomitant]

REACTIONS (12)
  - GENERAL PHYSICAL HEALTH DETERIORATION [None]
  - HYPERGLYCAEMIA [None]
  - INTERSTITIAL LUNG DISEASE [None]
  - OEDEMA PERIPHERAL [None]
  - OXYGEN SATURATION DECREASED [None]
  - PNEUMOCYSTIS JIROVECI INFECTION [None]
  - PNEUMONIA ASPIRATION [None]
  - PNEUMONIA FUNGAL [None]
  - PULMONARY ALVEOLAR HAEMORRHAGE [None]
  - PULMONARY OEDEMA [None]
  - PYREXIA [None]
  - THERAPEUTIC AGENT TOXICITY [None]
